FAERS Safety Report 9302165 (Version 2)
Quarter: 2013Q2

REPORT INFORMATION
  Report Type: Spontaneous
  Country: US (occurrence: US)
  Receive Date: 20130522
  Receipt Date: 20130610
  Transmission Date: 20140414
  Serious: Yes (Hospitalization)
  Sender: FDA-Public Use
  Company Number: US-B.I. PHARMACEUTICALS,INC./RIDGEFIELD-2013-BI-13813BP

PATIENT
  Age: 79 Year
  Sex: Male

DRUGS (8)
  1. PRADAXA [Suspect]
     Indication: THROMBOSIS PROPHYLAXIS
     Dosage: 300 MG
     Route: 048
     Dates: start: 2011
  2. FOLIC ACID [Concomitant]
     Indication: FOLATE DEFICIENCY
  3. TYLENOL [Concomitant]
     Indication: ARTHRITIS
     Dosage: 650 MG
     Route: 048
  4. ASPIRIN [Concomitant]
     Indication: CARDIOVASCULAR EVENT PROPHYLAXIS
     Dosage: 81 MG
  5. ALLOPURINOL [Concomitant]
     Indication: GOUT
     Dosage: 100 MG
     Route: 048
  6. LORATADINE [Concomitant]
     Indication: SEASONAL ALLERGY
     Dosage: 10 MG
     Route: 048
  7. METOPROLOL [Concomitant]
     Indication: FLUID RETENTION
     Dosage: 50 MG
     Route: 048
  8. VITAMIN B12 [Concomitant]
     Indication: VITAMIN B12 DECREASED
     Dosage: 4 MG
     Route: 048

REACTIONS (3)
  - Cerebrovascular accident [Recovered/Resolved with Sequelae]
  - Cerebrovascular accident [Not Recovered/Not Resolved]
  - Hypotension [Not Recovered/Not Resolved]
